FAERS Safety Report 24839222 (Version 1)
Quarter: 2025Q1

REPORT INFORMATION
  Report Type: Spontaneous
  Country: IT (occurrence: IT)
  Receive Date: 20250114
  Receipt Date: 20250114
  Transmission Date: 20250409
  Serious: Yes (Other)
  Sender: BIOGEN
  Company Number: IT-BIOGEN-2025BI01296424

PATIENT
  Sex: Male

DRUGS (1)
  1. TOFERSEN [Suspect]
     Active Substance: TOFERSEN
     Indication: Amyotrophic lateral sclerosis
     Route: 050

REACTIONS (3)
  - Pulmonary embolism [Unknown]
  - Decubitus ulcer [Unknown]
  - Bulbar palsy [Unknown]
